FAERS Safety Report 6408226-2 (Version None)
Quarter: 2009Q4

REPORT INFORMATION
  Report Type: 
  Country: None (occurrence: None)
  Receive Date: 20091021
  Receipt Date: 20091020
  Transmission Date: 20100525
  Serious: Yes (Hospitalization)
  Sender: FDA-Public Use
  Company Number: US-JNJFOC-20091003306

PATIENT
  Age: 4 Year
  Sex: Male
  Weight: 20.41 kg

DRUGS (1)
  1. CHILDREN'S TYLENOL PLUS MULTI-SYMPTOM COLD GRAPE [Suspect]
     Indication: NASOPHARYNGITIS
     Route: 048

REACTIONS (2)
  - PNEUMONIA BACTERIAL [None]
  - TRANSMISSION OF AN INFECTIOUS AGENT VIA A MEDICINAL PRODUCT [None]
